FAERS Safety Report 9951234 (Version 1)
Quarter: 2014Q1

REPORT INFORMATION
  Report Type: Report from Study
  Country: US (occurrence: US)
  Receive Date: 20140304
  Receipt Date: 20140304
  Transmission Date: 20141002
  Serious: No
  Sender: FDA-Public Use
  Company Number: US-ABBVIE-13P-163-1067072-00

PATIENT
  Age: 72 Year
  Sex: Female

DRUGS (10)
  1. HUMIRA [Suspect]
     Indication: RHEUMATOID ARTHRITIS
     Dates: start: 20121211
  2. ATENOLOL [Concomitant]
     Indication: PRODUCT USED FOR UNKNOWN INDICATION
     Dosage: DAILY
  3. METHOTREXATE [Concomitant]
     Indication: PRODUCT USED FOR UNKNOWN INDICATION
     Dosage: 3 TABLETS WEEKLY
  4. FOLIC ACID [Concomitant]
     Indication: VITAMIN SUPPLEMENTATION
  5. ZOFRAN [Concomitant]
     Indication: NAUSEA
  6. LASIX [Concomitant]
     Indication: FLUID RETENTION
  7. DICYCLOMINE [Concomitant]
     Indication: ABDOMINAL PAIN UPPER
  8. SKELAXIN [Concomitant]
     Indication: MUSCLE SPASMS
  9. QUININE [Concomitant]
     Indication: MUSCLE SPASMS
  10. REMERON [Concomitant]
     Indication: DEPRESSION
     Dosage: DAILY

REACTIONS (3)
  - Injection site pain [Not Recovered/Not Resolved]
  - Injection site pain [Not Recovered/Not Resolved]
  - Injury associated with device [Unknown]
